FAERS Safety Report 6511876-6 (Version None)
Quarter: 2009Q4

REPORT INFORMATION
  Report Type: 
  Country: None (occurrence: None)
  Receive Date: 20091222
  Receipt Date: 20090619
  Transmission Date: 20100525
  Serious: No
  Sender: FDA-Public Use
  Company Number: US-ASTRAZENECA-2009UW16366

PATIENT
  Age: 77 Year
  Sex: Female

DRUGS (4)
  1. CRESTOR [Suspect]
     Indication: BLOOD CHOLESTEROL INCREASED
     Dosage: 5-10 MG, DAILY
     Route: 048
  2. PRILOSEC [Concomitant]
  3. ASPIRIN [Concomitant]
  4. DIURIL [Concomitant]

REACTIONS (2)
  - ABDOMINAL PAIN UPPER [None]
  - ROSACEA [None]
